FAERS Safety Report 18417555 (Version 3)
Quarter: 2021Q1

REPORT INFORMATION
  Report Type: Spontaneous
  Country: US (occurrence: US)
  Receive Date: 20201022
  Receipt Date: 20210104
  Transmission Date: 20210419
  Serious: Yes (Hospitalization)
  Sender: FDA-Public Use
  Company Number: US-SEATTLE GENETICS-2020SGN04169

PATIENT
  Sex: Female

DRUGS (1)
  1. TUKYSA [Suspect]
     Active Substance: TUCATINIB
     Indication: BREAST CANCER FEMALE
     Dosage: UNK
     Route: 065

REACTIONS (5)
  - Dizziness [Recovered/Resolved]
  - Constipation [Unknown]
  - Hypoaesthesia [Unknown]
  - Fatigue [Unknown]
  - Somnolence [Unknown]
